FAERS Safety Report 11051975 (Version 4)
Quarter: 2015Q4

REPORT INFORMATION
  Report Type: Spontaneous
  Country: US (occurrence: US)
  Receive Date: 20150421
  Receipt Date: 20151105
  Transmission Date: 20160304
  Serious: No
  Sender: FDA-Public Use
  Company Number: US-009507513-1504USA017079

PATIENT
  Sex: Male

DRUGS (7)
  1. PROPECIA [Suspect]
     Active Substance: FINASTERIDE
     Indication: BENIGN PROSTATIC HYPERPLASIA
  2. PROPECIA [Suspect]
     Active Substance: FINASTERIDE
     Indication: ALOPECIA
     Dosage: 1 MG, QD
     Route: 048
     Dates: start: 20040123, end: 20110411
  3. PROSCAR [Suspect]
     Active Substance: FINASTERIDE
     Indication: ALOPECIA
     Dosage: 5 MG, QD
     Route: 048
     Dates: start: 20110412, end: 2014
  4. PROSCAR [Suspect]
     Active Substance: FINASTERIDE
     Indication: BENIGN PROSTATIC HYPERPLASIA
  5. FINASTERIDE. [Suspect]
     Active Substance: FINASTERIDE
     Indication: ALOPECIA
     Dosage: 1 MG, UNK
     Route: 048
  6. FINASTERIDE. [Suspect]
     Active Substance: FINASTERIDE
     Indication: BENIGN PROSTATIC HYPERPLASIA
     Dosage: 5 MG, QD
     Route: 048
     Dates: start: 20110711, end: 20140825
  7. FINASTERIDE. [Suspect]
     Active Substance: FINASTERIDE
     Indication: BENIGN PROSTATIC HYPERPLASIA

REACTIONS (14)
  - Erectile dysfunction [Not Recovered/Not Resolved]
  - Libido disorder [Unknown]
  - Drug administration error [Unknown]
  - Platelet count decreased [Unknown]
  - Epididymal tenderness [Unknown]
  - Breast enlargement [Unknown]
  - Drug administration error [Unknown]
  - Varicocele [Unknown]
  - Anorgasmia [Unknown]
  - Sexual dysfunction [Not Recovered/Not Resolved]
  - Hypertonic bladder [Unknown]
  - Blood cholesterol increased [Unknown]
  - Nephrolithiasis [Unknown]
  - Emotional disorder [Unknown]

NARRATIVE: CASE EVENT DATE: 2005
